FAERS Safety Report 18097775 (Version 1)
Quarter: 2020Q3

REPORT INFORMATION
  Report Type: Spontaneous
  Country: US (occurrence: US)
  Receive Date: 20200731
  Receipt Date: 20200731
  Transmission Date: 20201103
  Serious: Yes (Hospitalization)
  Sender: FDA-Public Use
  Company Number: None

PATIENT
  Age: 55 Year
  Sex: Female

DRUGS (4)
  1. MYCOPHENOLATE [Suspect]
     Active Substance: MYCOPHENOLIC ACID
     Indication: LIVER TRANSPLANT
     Route: 048
     Dates: start: 20200711
  2. SMZ?TMP, FUROSEMIDE, VALGANCICLOVIR, DOK, MG?PLUS, PREDNISONE [Concomitant]
  3. TACROLIMUS. [Suspect]
     Active Substance: TACROLIMUS
     Indication: LIVER TRANSPLANT
     Dosage: ?          OTHER FREQUENCY:EVERY 12 HOURS;?
     Route: 048
     Dates: start: 20200711
  4. ASPIRIN LOW DOSE, NYSTATIN, OMEPRAZOLE, LANTUS SOLOS, NOVOLOG [Concomitant]

REACTIONS (1)
  - Diarrhoea [None]

NARRATIVE: CASE EVENT DATE: 20200715
